FAERS Safety Report 4277656-X (Version None)
Quarter: 2004Q1

REPORT INFORMATION
  Report Type: 
  Country: None (occurrence: None)
  Receive Date: 20040121
  Receipt Date: 20040115
  Transmission Date: 20041129
  Serious: Yes (Death)
  Sender: FDA-Public Use
  Company Number: US-JNJFOC-20031005908

PATIENT
  Age: 58 Year
  Sex: Male

DRUGS (1)
  1. DURAGESIC [Suspect]
     Indication: CANCER PAIN
     Dosage: 400 UG/HR, 1 IN 72 HOURS, TRANSDERMAL
     Route: 062
     Dates: end: 20030901

REACTIONS (2)
  - MALIGNANT NEOPLASM PROGRESSION [None]
  - NASOPHARYNGEAL CANCER [None]
